FAERS Safety Report 25438069 (Version 1)
Quarter: 2025Q2

REPORT INFORMATION
  Report Type: Spontaneous
  Country: GR (occurrence: GR)
  Receive Date: 20250616
  Receipt Date: 20250616
  Transmission Date: 20250717
  Serious: Yes (Other)
  Sender: ROCHE
  Company Number: None

PATIENT
  Age: 13 Year
  Sex: Female

DRUGS (5)
  1. RITUXIMAB [Suspect]
     Active Substance: RITUXIMAB
     Indication: Nephrotic syndrome
     Route: 042
     Dates: start: 2024, end: 2024
  2. RUPATADINE [Concomitant]
     Active Substance: RUPATADINE
     Indication: Premedication
     Route: 048
  3. PREDNISOLONE [Concomitant]
     Active Substance: PREDNISOLONE
     Indication: Premedication
  4. ACETAMINOPHEN [Concomitant]
     Active Substance: ACETAMINOPHEN
     Indication: Premedication
  5. DIMETHINDENE [Concomitant]
     Active Substance: DIMETHINDENE
     Indication: Premedication
     Route: 042

REACTIONS (2)
  - Hypersensitivity [Unknown]
  - Off label use [Unknown]

NARRATIVE: CASE EVENT DATE: 20240101
